FAERS Safety Report 23467726 (Version 1)
Quarter: 2024Q1

REPORT INFORMATION
  Report Type: Report from Study
  Country: ES (occurrence: ES)
  Receive Date: 20240201
  Receipt Date: 20240201
  Transmission Date: 20240410
  Serious: Yes (Other)
  Sender: FDA-Public Use
  Company Number: ES-JNJFOC-20240163288

PATIENT

DRUGS (1)
  1. IMBRUVICA [Suspect]
     Active Substance: IBRUTINIB
     Indication: Chronic lymphocytic leukaemia
     Route: 048

REACTIONS (11)
  - Hepatotoxicity [Unknown]
  - Oedema [Unknown]
  - Skin disorder [Unknown]
  - Hypertension [Unknown]
  - Paraesthesia [Unknown]
  - Infection [Unknown]
  - Arthralgia [Unknown]
  - Tachycardia [Unknown]
  - Asthenia [Unknown]
  - Dyspepsia [Unknown]
  - Haemorrhage [Unknown]
